FAERS Safety Report 7867051-6 (Version None)
Quarter: 2011Q4

REPORT INFORMATION
  Report Type: 
  Country: None (occurrence: None)
  Receive Date: 20111028
  Receipt Date: 20111019
  Transmission Date: 20120403
  Serious: Yes (Hospitalization)
  Sender: FDA-Public Use
  Company Number: US-JNJFOC-20111008865

PATIENT
  Sex: Female
  Weight: 58.97 kg

DRUGS (7)
  1. REMICADE [Suspect]
     Indication: COLITIS ULCERATIVE
     Route: 042
     Dates: start: 20091001
  2. LANSOPRAZOLE [Concomitant]
     Indication: COLITIS ULCERATIVE
     Route: 048
  3. AMBIEN [Concomitant]
     Indication: SLEEP DISORDER
     Route: 048
  4. DILTIAZEM HCL [Concomitant]
     Indication: BLOOD PRESSURE
     Route: 048
  5. CENTRAL NERVOUS SYSTEM MEDICATION [Concomitant]
     Indication: NERVOUSNESS
     Route: 048
     Dates: end: 20100101
  6. NEXIUM [Concomitant]
     Indication: GASTROOESOPHAGEAL REFLUX DISEASE
     Route: 048
  7. DIAZEPAM [Concomitant]
     Indication: NERVOUSNESS
     Route: 048
     Dates: start: 20100101

REACTIONS (6)
  - NEPHROLITHIASIS [None]
  - VERTIGO [None]
  - URINARY INCONTINENCE [None]
  - KIDNEY INFECTION [None]
  - PAIN [None]
  - EAR PAIN [None]
